FAERS Safety Report 15271456 (Version 1)
Quarter: 2018Q3

REPORT INFORMATION
  Report Type: Spontaneous
  Country: US (occurrence: US)
  Receive Date: 20180813
  Receipt Date: 20180813
  Transmission Date: 20181010
  Serious: No
  Sender: FDA-Public Use
  Company Number: US-ASTRAZENECA-2018SE96603

PATIENT
  Sex: Female

DRUGS (2)
  1. INCRUSE ELLIPTA [Concomitant]
     Active Substance: UMECLIDINIUM BROMIDE
     Dosage: UNKNOWN
     Route: 065
     Dates: end: 20180724
  2. BEVESPI AEROSPHERE [Suspect]
     Active Substance: FORMOTEROL FUMARATE\GLYCOPYRROLATE
     Indication: COUGH
     Route: 055
     Dates: end: 20180724

REACTIONS (5)
  - Product use in unapproved indication [Recovered/Resolved]
  - Cough [Unknown]
  - Urinary incontinence [Unknown]
  - Treatment noncompliance [Not Recovered/Not Resolved]
  - Off label use [Recovered/Resolved]
